FAERS Safety Report 10758930 (Version 4)
Quarter: 2015Q3

REPORT INFORMATION
  Report Type: Spontaneous
  Country: US (occurrence: US)
  Receive Date: 20150203
  Receipt Date: 20150715
  Transmission Date: 20151125
  Serious: No
  Sender: FDA-Public Use
  Company Number: US-PFIZER INC-2015040014

PATIENT
  Age: 67 Year
  Sex: Female
  Weight: 73 kg

DRUGS (11)
  1. CITRICAL [Concomitant]
     Active Substance: CALCIUM CITRATE
     Dosage: UNK, 2X/DAY
     Dates: start: 201501
  2. VITAMIN D [Concomitant]
     Active Substance: CHOLECALCIFEROL
     Dosage: UNK, 1X/DAY
     Dates: start: 201504
  3. SUTENT [Suspect]
     Active Substance: SUNITINIB MALATE
     Dosage: 37.5 MG, 1X/DAY
     Dates: start: 20150218
  4. HYDROCHLOROTHIAZIDE. [Concomitant]
     Active Substance: HYDROCHLOROTHIAZIDE
     Indication: BLOOD PRESSURE MEASUREMENT
     Dosage: 25 MG, 1X/DAY
     Dates: start: 201504
  5. LEVOTHYROXINE. [Concomitant]
     Active Substance: LEVOTHYROXINE
     Dosage: UNK
     Dates: start: 201501
  6. NIFEDICAL [Concomitant]
     Indication: HYPERTENSION
     Dosage: 30 MG, 2X/DAY
     Dates: start: 201411
  7. SUTENT [Suspect]
     Active Substance: SUNITINIB MALATE
     Indication: RENAL CELL CARCINOMA
     Dosage: 50 MG, UNK
     Dates: start: 201411, end: 20141230
  8. LEVOTHYROXINE. [Concomitant]
     Active Substance: LEVOTHYROXINE
     Indication: THYROID DISORDER
     Dosage: 75 MG, 1X/DAY (25MG 3 DAY)
     Dates: start: 201502
  9. OMEPRAZOLE. [Concomitant]
     Active Substance: OMEPRAZOLE
     Indication: GASTROOESOPHAGEAL REFLUX DISEASE
     Dosage: 40 MG, 1X/DAY
     Dates: start: 201505
  10. OXYCODONE AND ACETAMINOPHEN [Concomitant]
     Active Substance: ACETAMINOPHEN\OXYCODONE\OXYCODONE HYDROCHLORIDE
     Dosage: UNK, AS NEEDED
     Dates: start: 201504
  11. NIFEDIPINE. [Concomitant]
     Active Substance: NIFEDIPINE
     Indication: BLOOD PRESSURE MEASUREMENT
     Dosage: 60 MG, 1X/DAY
     Dates: start: 201404

REACTIONS (5)
  - Memory impairment [Recovered/Resolved]
  - Confusional state [Recovered/Resolved]
  - Nervous system disorder [Recovered/Resolved]
  - Cognitive disorder [Unknown]
  - Platelet disorder [Unknown]

NARRATIVE: CASE EVENT DATE: 2014
